FAERS Safety Report 12319653 (Version 2)
Quarter: 2016Q2

REPORT INFORMATION
  Report Type: Spontaneous
  Country: FR (occurrence: FR)
  Receive Date: 20160429
  Receipt Date: 20160504
  Transmission Date: 20160815
  Serious: Yes (Life-Threatening, Hospitalization)
  Sender: FDA-Public Use
  Company Number: FR-FRESENIUS KABI-FK201602208

PATIENT
  Age: 77 Year
  Sex: Female

DRUGS (7)
  1. MOVICOL [Suspect]
     Active Substance: POLYETHYLENE GLYCOL 3350\POTASSIUM CHLORIDE\SODIUM BICARBONATE\SODIUM CHLORIDE
     Route: 048
  2. PANTOPRAZOLE [Concomitant]
     Active Substance: PANTOPRAZOLE SODIUM
  3. ATARAX [Concomitant]
     Active Substance: HYDROXYZINE\HYDROXYZINE HYDROCHLORIDE
  4. PROPOFOL 1% FRESENIUS [Suspect]
     Active Substance: PROPOFOL
     Indication: INDUCTION OF ANAESTHESIA
     Route: 042
     Dates: start: 20150904, end: 20150904
  5. CELOCURINE [Suspect]
     Active Substance: SUCCINYLCHOLINE CHLORIDE
     Indication: GENERAL ANAESTHESIA
     Route: 042
     Dates: start: 20150904, end: 20150904
  6. EPHEDRINE AGUETTANT [Concomitant]
     Active Substance: EPHEDRINE
  7. PARACETAMOL [Concomitant]
     Active Substance: ACETAMINOPHEN

REACTIONS (2)
  - Cardio-respiratory arrest [Recovered/Resolved]
  - Anaphylactic shock [Recovered/Resolved]

NARRATIVE: CASE EVENT DATE: 20150904
